FAERS Safety Report 9773481 (Version 2)
Quarter: 2014Q1

REPORT INFORMATION
  Report Type: Report from Study
  Country: CA (occurrence: CA)
  Receive Date: 20131219
  Receipt Date: 20140120
  Transmission Date: 20141002
  Serious: Yes (Other)
  Sender: FDA-Public Use
  Company Number: PHHY2013CA149077

PATIENT
  Sex: Male

DRUGS (3)
  1. CLOZARIL [Suspect]
     Dosage: UNK
     Route: 048
     Dates: start: 20130128, end: 20131214
  2. SUSTENAN                           /00593501/ [Concomitant]
  3. METFORMIN [Concomitant]

REACTIONS (3)
  - Diabetes mellitus inadequate control [Recovering/Resolving]
  - Polydipsia [Recovering/Resolving]
  - Fatigue [Recovering/Resolving]
